FAERS Safety Report 5073582-7 (Version None)
Quarter: 2006Q3

REPORT INFORMATION
  Report Type: 
  Country: None (occurrence: None)
  Receive Date: 20060808
  Receipt Date: 20060516
  Transmission Date: 20061208
  Serious: Yes (Hospitalization, Other)
  Sender: FDA-Public Use
  Company Number: US-GLAXOSMITHKLINE-A0605837A

PATIENT
  Age: 45 Year
  Sex: Female

DRUGS (2)
  1. WELLBUTRIN XL [Suspect]
     Indication: DRUG USE FOR UNKNOWN INDICATION
     Dosage: 450MG UNKNOWN
     Route: 048
     Dates: start: 20050113, end: 20060508
  2. BUSPAR [Concomitant]

REACTIONS (5)
  - MOUTH ULCERATION [None]
  - OESOPHAGEAL PAIN [None]
  - ORAL PAIN [None]
  - ORAL SOFT TISSUE DISORDER [None]
  - STEVENS-JOHNSON SYNDROME [None]
